FAERS Safety Report 14837013 (Version 1)
Quarter: 2018Q2

REPORT INFORMATION
  Report Type: Spontaneous
  Country: DE (occurrence: DE)
  Receive Date: 20180502
  Receipt Date: 20180502
  Transmission Date: 20180711
  Serious: Yes (Hospitalization)
  Sender: FDA-Public Use
  Company Number: DE-SA-2018SA112912

PATIENT
  Sex: Female

DRUGS (12)
  1. METOPROLOL. [Suspect]
     Active Substance: METOPROLOL
     Dosage: DOSE: 95MG
     Route: 048
  2. APIXABAN [Suspect]
     Active Substance: APIXABAN
     Route: 065
  3. EISEN-II-SULFAT [Concomitant]
     Route: 065
  4. IPRATROPIUM BROMIDE. [Concomitant]
     Active Substance: IPRATROPIUM BROMIDE
     Route: 065
  5. CLOPIDOGREL BISULFATE. [Suspect]
     Active Substance: CLOPIDOGREL BISULFATE
     Route: 048
  6. ACTRAPID [Concomitant]
     Active Substance: INSULIN HUMAN
  7. XIPAMIDE [Concomitant]
     Active Substance: XIPAMIDE
     Route: 065
  8. FUROSEMID [Concomitant]
     Active Substance: FUROSEMIDE
     Route: 065
  9. AMIODARON [Concomitant]
     Active Substance: AMIODARONE
     Route: 065
  10. LEVEMIR [Concomitant]
     Active Substance: INSULIN DETEMIR
     Route: 065
  11. PANTOPRAZOL [Concomitant]
     Active Substance: PANTOPRAZOLE SODIUM
     Route: 065
  12. LACTULOSE. [Concomitant]
     Active Substance: LACTULOSE
     Route: 065

REACTIONS (4)
  - Anaemia [Unknown]
  - Condition aggravated [Unknown]
  - Fatigue [Unknown]
  - General physical health deterioration [Unknown]
